APPROVED DRUG PRODUCT: IPRATROPIUM BROMIDE
Active Ingredient: IPRATROPIUM BROMIDE
Strength: 0.02%
Dosage Form/Route: SOLUTION;INHALATION
Application: A075562 | Product #001 | TE Code: AN
Applicant: NEPHRON CORP
Approved: Sep 27, 2001 | RLD: No | RS: No | Type: RX